FAERS Safety Report 16575041 (Version 1)
Quarter: 2019Q3

REPORT INFORMATION
  Report Type: Report from Study
  Country: CR (occurrence: CR)
  Receive Date: 20190715
  Receipt Date: 20190715
  Transmission Date: 20191004
  Serious: Yes (Death)
  Sender: FDA-Public Use
  Company Number: PHHY2019CR163599

PATIENT
  Age: 47 Year
  Sex: Female

DRUGS (1)
  1. GALVUS MET [Suspect]
     Active Substance: METFORMIN HYDROCHLORIDE\VILDAGLIPTIN
     Indication: PRODUCT USED FOR UNKNOWN INDICATION
     Dosage: UNK (1000 MG METFORMIN, 50 MG VILDAGLIPTIN)
     Route: 065
     Dates: end: 201905

REACTIONS (3)
  - Abscess limb [Fatal]
  - Obesity [Fatal]
  - Diabetes mellitus [Fatal]
